FAERS Safety Report 5525051-5 (Version None)
Quarter: 2007Q4

REPORT INFORMATION
  Report Type: 
  Country: None (occurrence: None)
  Receive Date: 20071126
  Receipt Date: 20071120
  Transmission Date: 20080405
  Serious: Yes (Other)
  Sender: FDA-Public Use
  Company Number: CA-JNJFOC-20071100489

PATIENT
  Sex: Male
  Weight: 64 kg

DRUGS (9)
  1. TMC125 [Suspect]
     Indication: HIV INFECTION
     Dosage: TEMPORARY STOP
     Route: 048
  2. PREZISTA [Concomitant]
     Indication: HIV INFECTION
     Dosage: TEMPORARY STOP
     Route: 048
  3. MK-0518 [Concomitant]
     Indication: HIV INFECTION
     Route: 048
  4. RITONAVIR [Concomitant]
     Indication: HIV INFECTION
     Route: 048
  5. AZITHROMYCIN [Concomitant]
     Route: 065
  6. SEPTRA [Concomitant]
     Route: 065
  7. VIAGRA [Concomitant]
     Route: 065
  8. BENADRYL [Concomitant]
     Route: 065
  9. FLUCONAZOLE [Concomitant]
     Route: 065

REACTIONS (1)
  - HEPATITIS B [None]
